FAERS Safety Report 16922725 (Version 3)
Quarter: 2019Q4

REPORT INFORMATION
  Report Type: Spontaneous
  Country: US (occurrence: US)
  Receive Date: 20191016
  Receipt Date: 20191213
  Transmission Date: 20200122
  Serious: No
  Sender: FDA-Public Use
  Company Number: US-BIOGEN-2019BI00796359

PATIENT
  Age: 41 Year
  Sex: Female

DRUGS (4)
  1. TYSABRI [Suspect]
     Active Substance: NATALIZUMAB
     Route: 065
     Dates: start: 20150109, end: 20161216
  2. TYSABRI [Suspect]
     Active Substance: NATALIZUMAB
     Indication: MULTIPLE SCLEROSIS
     Route: 042
     Dates: start: 20190531
  3. TYSABRI [Suspect]
     Active Substance: NATALIZUMAB
     Route: 042
  4. DICYCLOMINE [Concomitant]
     Active Substance: DICYCLOMINE HYDROCHLORIDE
     Route: 065

REACTIONS (3)
  - Diarrhoea [Unknown]
  - Secondary progressive multiple sclerosis [Unknown]
  - Skin disorder [Unknown]

NARRATIVE: CASE EVENT DATE: 20191011
